FAERS Safety Report 8880883 (Version 2)
Quarter: 2013Q1

REPORT INFORMATION
  Report Type: Spontaneous
  Country: US (occurrence: US)
  Receive Date: 20121101
  Receipt Date: 20130225
  Transmission Date: 20140127
  Serious: No
  Sender: FDA-Public Use
  Company Number: US-B.I. PHARMACEUTICALS,INC./RIDGEFIELD-2012-BP-26568BP

PATIENT
  Sex: Female
  Weight: 58.97 kg

DRUGS (3)
  1. SPIRIVA [Suspect]
     Indication: CHRONIC OBSTRUCTIVE PULMONARY DISEASE
     Route: 055
     Dates: start: 20110308, end: 20121015
  2. PROAIR HFA [Concomitant]
     Indication: CHRONIC OBSTRUCTIVE PULMONARY DISEASE
     Dates: start: 20110305
  3. ALLEGRA-D [Concomitant]
     Indication: HYPERSENSITIVITY
     Dates: start: 20110923

REACTIONS (7)
  - Eye disorder [Unknown]
  - Eye pain [Unknown]
  - Vision blurred [Unknown]
  - Lacrimal disorder [Unknown]
  - Abnormal sensation in eye [Unknown]
  - Cataract [Not Recovered/Not Resolved]
  - Glaucoma [Not Recovered/Not Resolved]
